FAERS Safety Report 4677584-1 (Version None)
Quarter: 2005Q2

REPORT INFORMATION
  Report Type: 
  Country: None (occurrence: None)
  Receive Date: 20050531
  Receipt Date: 20050522
  Transmission Date: 20051028
  Serious: Yes (Other)
  Sender: FDA-Public Use
  Company Number: PHBS2005BR07344

PATIENT
  Age: 95 Year
  Sex: Female

DRUGS (7)
  1. EXELON [Suspect]
     Dosage: 1.5 MG, BID
     Route: 048
     Dates: start: 20030801
  2. EXELON [Suspect]
     Dosage: 3 MG, BID
     Route: 048
  3. EXELON [Suspect]
     Dosage: 7.5 MG/D
     Route: 048
  4. SOCIAN [Concomitant]
  5. HALDOL [Concomitant]
  6. FLUOXETINA [Concomitant]
  7. QUETAIS [Concomitant]

REACTIONS (6)
  - CATATONIA [None]
  - DIFFICULTY IN WALKING [None]
  - MOVEMENT DISORDER [None]
  - SENSORY DISTURBANCE [None]
  - SPEECH DISORDER [None]
  - VISUAL DISTURBANCE [None]
